FAERS Safety Report 8119511-0 (Version None)
Quarter: 2012Q1

REPORT INFORMATION
  Report Type: 
  Country: None (occurrence: None)
  Receive Date: 20120207
  Receipt Date: 20120130
  Transmission Date: 20120608
  Serious: Yes (Hospitalization)
  Sender: FDA-Public Use
  Company Number: PHHY2012NL007550

PATIENT
  Sex: Female

DRUGS (1)
  1. ZOMETA [Suspect]
     Indication: BREAST CANCER METASTATIC
     Dosage: 4 MG/100 ML, ONCE PER 28 DAYS
     Route: 042
     Dates: start: 20111227

REACTIONS (3)
  - ASCITES [None]
  - FLUID RETENTION [None]
  - FULL BLOOD COUNT ABNORMAL [None]
